FAERS Safety Report 6052820-8 (Version None)
Quarter: 2009Q1

REPORT INFORMATION
  Report Type: 
  Country: None (occurrence: None)
  Receive Date: 20090127
  Receipt Date: 20090115
  Transmission Date: 20090719
  Serious: Yes (Death)
  Sender: FDA-Public Use
  Company Number: FR-PFIZER INC-2009157015

PATIENT

DRUGS (3)
  1. AMLOR [Suspect]
     Indication: HYPERTENSION
     Route: 048
  2. SECTRAL [Suspect]
     Indication: HYPERTENSION
     Route: 048
  3. LIPANTHYL [Suspect]
     Indication: HYPERCHOLESTEROLAEMIA
     Route: 048

REACTIONS (7)
  - CARDIO-RESPIRATORY ARREST [None]
  - DERMATITIS [None]
  - EOSINOPHILIC PNEUMONIA ACUTE [None]
  - INTERSTITIAL LUNG DISEASE [None]
  - RASH MACULO-PAPULAR [None]
  - RESPIRATORY ACIDOSIS [None]
  - RESPIRATORY DISTRESS [None]
